FAERS Safety Report 7796073-9 (Version None)
Quarter: 2011Q4

REPORT INFORMATION
  Report Type: 
  Country: None (occurrence: None)
  Receive Date: 20111004
  Receipt Date: 20110923
  Transmission Date: 20120403
  Serious: Yes (Other)
  Sender: FDA-Public Use
  Company Number: US-ELI_LILLY_AND_COMPANY-US201109006811

PATIENT
  Sex: Female

DRUGS (1)
  1. EFFIENT [Suspect]

REACTIONS (2)
  - RENAL HAEMORRHAGE [None]
  - RENAL DISORDER [None]
